FAERS Safety Report 6456752-2 (Version None)
Quarter: 2009Q4

REPORT INFORMATION
  Report Type: 
  Country: None (occurrence: None)
  Receive Date: 20091123
  Receipt Date: 20091016
  Transmission Date: 20100525
  Serious: Yes (Death, Life-Threatening)
  Sender: FDA-Public Use
  Company Number: 1321116-2009-00002

PATIENT
  Age: 48 Year
  Sex: Female

DRUGS (2)
  1. HEPARIN [Suspect]
     Indication: DRUG USE FOR UNKNOWN INDICATION
     Dates: start: 20070518
  2. HEPARIN [Suspect]
     Indication: DRUG USE FOR UNKNOWN INDICATION
     Dosage: 5000 UNITS/0.5 ML
     Dates: start: 20070501, end: 20070601

REACTIONS (5)
  - ACUTE RESPIRATORY DISTRESS SYNDROME [None]
  - HYPOTENSION [None]
  - MULTI-ORGAN FAILURE [None]
  - PULMONARY HAEMORRHAGE [None]
  - UNRESPONSIVE TO STIMULI [None]
